FAERS Safety Report 7934163 (Version 3)
Quarter: 2013Q2

REPORT INFORMATION
  Report Type: Report from Study
  Country: JP (occurrence: JP)
  Receive Date: 20110506
  Receipt Date: 20130604
  Transmission Date: 20140414
  Serious: Yes (Hospitalization, Other)
  Sender: FDA-Public Use
  Company Number: PHHY2008JP11869

PATIENT
  Age: 6 Year
  Sex: Female

DRUGS (23)
  1. CERTICAN [Suspect]
     Indication: HEART TRANSPLANT
     Dosage: 0.5 MG, QD
     Route: 048
     Dates: start: 20050221, end: 20050227
  2. CERTICAN [Suspect]
     Dosage: 1 MG, QD
     Route: 048
     Dates: start: 20050228, end: 20050303
  3. CERTICAN [Suspect]
     Dosage: 1.5 MG, UNK
     Route: 048
     Dates: start: 20050304, end: 20050516
  4. CERTICAN [Suspect]
     Dosage: 1.5 MG, UNK
     Route: 048
     Dates: start: 20070220, end: 20070805
  5. CERTICAN [Suspect]
     Dosage: 1 MG, UNK
     Route: 048
     Dates: start: 20070806
  6. PROGRAF [Suspect]
     Indication: HEART TRANSPLANT
     Dosage: 3.6 MG, UNK
     Route: 048
     Dates: end: 20050227
  7. PROGRAF [Suspect]
     Dosage: 2 MG, UNK
     Route: 048
     Dates: start: 20050228, end: 20050313
  8. PROGRAF [Suspect]
     Dosage: 2.8 MG, UNK
     Route: 048
     Dates: start: 20050314
  9. PROGRAF [Suspect]
     Dosage: 2 MG, UNK
     Route: 048
     Dates: start: 20050220, end: 20070607
  10. PROGRAF [Suspect]
     Dosage: 2.6 MG, UNK
     Route: 048
     Dates: start: 20070608, end: 20070911
  11. PROGRAF [Suspect]
     Dosage: 1.2 MG, UNK
     Route: 048
     Dates: start: 20070912, end: 20071016
  12. CELLCEPT [Suspect]
     Indication: HEART TRANSPLANT
     Dosage: 125 MG, UNK
     Route: 048
     Dates: start: 20040802
  13. CELLCEPT [Suspect]
     Dosage: 250 MG, UNK
     Route: 048
     Dates: start: 20070220
  14. PREDONINE [Suspect]
     Indication: HEART TRANSPLANT
     Dosage: 2 MG, UNK
     Route: 048
     Dates: start: 200105
  15. PREDONINE [Suspect]
     Dosage: 1 MG, UNK
     Dates: start: 20070220
  16. TACROLIMUS [Suspect]
     Indication: HEART TRANSPLANT
     Dosage: UNK UKN, UNK
  17. BAKTAR [Concomitant]
     Indication: ANTIFUNGAL PROPHYLAXIS
     Dosage: 1.5 G, UNK
     Route: 048
     Dates: start: 200105
  18. BAKTAR [Concomitant]
     Dosage: UNK UKN, UNK
  19. RENIVACE [Concomitant]
     Indication: HYPERTENSION
     Dosage: 1.25 MG, UNK
     Route: 048
     Dates: start: 200105
  20. PREDNISOLONE [Concomitant]
     Dosage: UNK
  21. RITUXIMAB [Concomitant]
     Dosage: UNK
  22. GAMMA GLOBULIN [Concomitant]
     Dosage: UNK
  23. MEVALOTIN [Concomitant]
     Dosage: 30 MG, UNK
     Route: 048
     Dates: start: 20070720

REACTIONS (21)
  - Pneumonia [Recovered/Resolved]
  - Pyrexia [Recovered/Resolved]
  - C-reactive protein increased [Recovered/Resolved]
  - White blood cell count increased [Recovered/Resolved]
  - Diarrhoea [Recovered/Resolved]
  - Vomiting [Recovered/Resolved]
  - Post transplant lymphoproliferative disorder [Recovered/Resolved]
  - Lymphadenopathy [Recovered/Resolved]
  - Abdominal pain [Unknown]
  - Influenza like illness [Unknown]
  - Bronchitis [Recovered/Resolved]
  - Heart transplant rejection [Recovering/Resolving]
  - Brain natriuretic peptide increased [Recovering/Resolving]
  - Cardiac hypertrophy [Recovering/Resolving]
  - Pericardial effusion [Recovering/Resolving]
  - Myocardial oedema [Recovering/Resolving]
  - Laryngeal neoplasm [Recovered/Resolved]
  - Laryngeal oedema [Unknown]
  - Obstructive airways disorder [Unknown]
  - Snoring [Unknown]
  - Hypercholesterolaemia [Recovered/Resolved]
